FAERS Safety Report 15119742 (Version 1)
Quarter: 2018Q3

REPORT INFORMATION
  Report Type: Spontaneous
  Country: US (occurrence: US)
  Receive Date: 20180709
  Receipt Date: 20180709
  Transmission Date: 20181010
  Serious: No
  Sender: FDA-Public Use
  Company Number: US-TAKEDA-2018TUS021313

PATIENT
  Age: 60 Year
  Sex: Male
  Weight: 68.03 kg

DRUGS (2)
  1. ENTYVIO [Suspect]
     Active Substance: VEDOLIZUMAB
     Indication: CROHN^S DISEASE
     Dosage: 300 MG, UNK
     Route: 042
     Dates: start: 201801
  2. METOPROLOL. [Concomitant]
     Active Substance: METOPROLOL
     Indication: WOLFF-PARKINSON-WHITE SYNDROME
     Dosage: 10 MG, BID
     Route: 048

REACTIONS (2)
  - Cough [Recovered/Resolved]
  - Oropharyngeal pain [Recovered/Resolved]

NARRATIVE: CASE EVENT DATE: 201806
